FAERS Safety Report 6460898-2 (Version None)
Quarter: 2009Q4

REPORT INFORMATION
  Report Type: 
  Country: None (occurrence: None)
  Receive Date: 20091123
  Receipt Date: 20091109
  Transmission Date: 20100525
  Serious: Yes (Hospitalization)
  Sender: FDA-Public Use
  Company Number: 2009AC000345

PATIENT
  Age: 70 Year
  Sex: Male
  Weight: 117.9352 kg

DRUGS (37)
  1. DIGOXIN [Suspect]
     Dosage: 0.25 MG;QD;PO
     Route: 048
  2. DIGOXIN [Suspect]
     Dosage: 0.125 MG;QD;PO
     Route: 048
  3. COZAAR [Concomitant]
  4. METOPROLOL [Concomitant]
  5. VICODIN [Concomitant]
  6. XALATAN [Concomitant]
  7. TIMOLOL [Concomitant]
  8. PRAVACHOL [Concomitant]
  9. POTASSIUM [Concomitant]
  10. LASIX [Concomitant]
  11. COUMADIN [Concomitant]
  12. GLYBURIDE [Concomitant]
  13. TAMBOCOR [Concomitant]
  14. MAXZIDE [Concomitant]
  15. DARVOCET [Concomitant]
  16. PROSCAR [Concomitant]
  17. HYDROCODONE [Concomitant]
  18. PLAVIX [Concomitant]
  19. NITROSTAT [Concomitant]
  20. FLECAINIDE ACETATE [Concomitant]
  21. ZOLOFT [Concomitant]
  22. TRENTAL [Concomitant]
  23. TRICOR [Concomitant]
  24. LEXIPRO [Concomitant]
  25. B COMPLEX ELX [Concomitant]
  26. PREVACID [Concomitant]
  27. XANAX [Concomitant]
  28. METANX [Concomitant]
  29. CHELATION [Concomitant]
  30. IBUPROFEN [Concomitant]
  31. TYLENOL (CAPLET) [Concomitant]
  32. ASPIRIN [Concomitant]
  33. MULTI-VITAMIN [Concomitant]
  34. WARFARIN SODIUM [Concomitant]
  35. HYDROCHLOROTHIAZIDE [Concomitant]
  36. PENTOXIFYLLI [Concomitant]
  37. HYDROCODONE BITARTRATE AND ACETAMINOPHEN [Concomitant]

REACTIONS (36)
  - ANAEMIA [None]
  - ANGINA PECTORIS [None]
  - ANHEDONIA [None]
  - ANXIETY [None]
  - AORTIC ANEURYSM [None]
  - ARTERIOSCLEROSIS CORONARY ARTERY [None]
  - ARTHRALGIA [None]
  - ATRIAL FIBRILLATION [None]
  - BLOOD GLUCOSE INCREASED [None]
  - BLOOD UREA INCREASED [None]
  - CARDIAC FAILURE CONGESTIVE [None]
  - CARDIOMEGALY [None]
  - CONDITION AGGRAVATED [None]
  - DEATH OF RELATIVE [None]
  - DEPRESSION [None]
  - DIABETES MELLITUS [None]
  - DIABETIC NEUROPATHY [None]
  - DIASTOLIC DYSFUNCTION [None]
  - DRUG TOXICITY [None]
  - DYSPNOEA [None]
  - FEELING ABNORMAL [None]
  - GAIT DISTURBANCE [None]
  - GASTROOESOPHAGEAL REFLUX DISEASE [None]
  - HEART RATE INCREASED [None]
  - HYPERLIPIDAEMIA [None]
  - INTERNATIONAL NORMALISED RATIO INCREASED [None]
  - JOINT SWELLING [None]
  - MULTIPLE INJURIES [None]
  - MUSCLE HAEMORRHAGE [None]
  - OVERDOSE [None]
  - PAIN [None]
  - PROTHROMBIN TIME PROLONGED [None]
  - QUALITY OF LIFE DECREASED [None]
  - RENAL VESSEL DISORDER [None]
  - SPLENOMEGALY [None]
  - THROMBOCYTOPENIA [None]
